FAERS Safety Report 7335735-4 (Version None)
Quarter: 2011Q1

REPORT INFORMATION
  Report Type: 
  Country: None (occurrence: None)
  Receive Date: 20110307
  Receipt Date: 20110224
  Transmission Date: 20110831
  Serious: Yes (Death)
  Sender: FDA-Public Use
  Company Number: B0703705A

PATIENT
  Age: 47 Year
  Sex: Male

DRUGS (6)
  1. ZANAMIVIR [Suspect]
     Dosage: 600MG TWICE PER DAY
     Route: 042
     Dates: start: 20110121
  2. COLISTIN SULFATE [Concomitant]
     Dates: start: 20110126, end: 20110128
  3. PREZOLON [Concomitant]
     Dates: start: 20110121, end: 20110128
  4. TAMIFLU [Concomitant]
     Dosage: 75MG TWICE PER DAY
  5. REFLUDAN [Concomitant]
     Dates: start: 20110127
  6. ARIXTRA [Concomitant]
     Dates: start: 20110124, end: 20110128

REACTIONS (1)
  - PULMONARY EMBOLISM [None]
